FAERS Safety Report 12843916 (Version 2)
Quarter: 2016Q4

REPORT INFORMATION
  Report Type: Spontaneous
  Country: FR (occurrence: FR)
  Receive Date: 20161013
  Receipt Date: 20161019
  Transmission Date: 20170207
  Serious: Yes (Death, Life-Threatening)
  Sender: FDA-Public Use
  Company Number: FR-JNJFOC-20161007632

PATIENT
  Age: 87 Year
  Sex: Female
  Weight: 62.3 kg

DRUGS (6)
  1. DUROGESIC [Suspect]
     Active Substance: FENTANYL
     Indication: PAIN
     Dosage: 25 MCG+12 MCG
     Route: 003
     Dates: start: 20160925
  2. ZYPREXA [Suspect]
     Active Substance: OLANZAPINE
     Indication: PAIN
     Route: 065
     Dates: start: 201512
  3. DUROGESIC [Suspect]
     Active Substance: FENTANYL
     Indication: PAIN
     Route: 003
     Dates: start: 20151221
  4. MOVICOL [Concomitant]
     Active Substance: POLYETHYLENE GLYCOL 3350\POTASSIUM CHLORIDE\SODIUM BICARBONATE\SODIUM CHLORIDE
     Route: 065
  5. DUROGESIC [Suspect]
     Active Substance: FENTANYL
     Indication: PAIN
     Dosage: 25 MCG+12 MCG
     Route: 003
     Dates: start: 20160922, end: 201609
  6. INEXIUM [Concomitant]
     Active Substance: ESOMEPRAZOLE
     Route: 065

REACTIONS (13)
  - Bradypnoea [Recovered/Resolved]
  - Leukocytosis [Unknown]
  - Dysphagia [Unknown]
  - Overdose [Unknown]
  - Disturbance in attention [Recovered/Resolved]
  - Pneumonia aspiration [Fatal]
  - Crepitations [Unknown]
  - Respiratory distress [Recovered/Resolved]
  - Bronchial obstruction [Unknown]
  - Oxygen saturation decreased [Recovered/Resolved]
  - Wrong technique in product usage process [Unknown]
  - Lung infection [Fatal]
  - Vomiting [Unknown]

NARRATIVE: CASE EVENT DATE: 201605
